FAERS Safety Report 6414431-1 (Version None)
Quarter: 2009Q4

REPORT INFORMATION
  Report Type: 
  Country: None (occurrence: None)
  Receive Date: 20091026
  Receipt Date: 20091015
  Transmission Date: 20100525
  Serious: Yes (Hospitalization, Other)
  Sender: FDA-Public Use
  Company Number: PHHY2009MX27806

PATIENT
  Sex: Female

DRUGS (2)
  1. ACLASTA [Suspect]
     Indication: OSTEOPOROSIS
     Dosage: 5 MG/100 ML
     Dates: start: 20081001
  2. OSSOPAN [Concomitant]

REACTIONS (4)
  - GAIT DISTURBANCE [None]
  - NERVE ROOT COMPRESSION [None]
  - PAIN IN EXTREMITY [None]
  - SPINAL OPERATION [None]
